FAERS Safety Report 18924990 (Version 1)
Quarter: 2021Q1

REPORT INFORMATION
  Report Type: Spontaneous
  Country: US (occurrence: US)
  Receive Date: 20210222
  Receipt Date: 20210222
  Transmission Date: 20210420
  Serious: Yes (Life-Threatening, Hospitalization, Other)
  Sender: FDA-Public Use
  Company Number: US-MALLINCKRODT-T202100743

PATIENT
  Age: 66 Year
  Sex: Male
  Weight: 127 kg

DRUGS (1)
  1. H.P. ACTHAR [Suspect]
     Active Substance: CORTICOTROPIN
     Indication: OCULAR PEMPHIGOID
     Dosage: 80 UNITS, ONCE A WEEK
     Route: 065

REACTIONS (5)
  - Coma [Not Recovered/Not Resolved]
  - COVID-19 [Not Recovered/Not Resolved]
  - Blindness [Not Recovered/Not Resolved]
  - Entropion [Not Recovered/Not Resolved]
  - Corneal abrasion [Not Recovered/Not Resolved]

NARRATIVE: CASE EVENT DATE: 202003
